FAERS Safety Report 24228801 (Version 1)
Quarter: 2024Q3

REPORT INFORMATION
  Report Type: Spontaneous
  Country: CN (occurrence: CN)
  Receive Date: 20240820
  Receipt Date: 20240820
  Transmission Date: 20241017
  Serious: Yes (Life-Threatening)
  Sender: GLAXOSMITHKLINE
  Company Number: CN-GLAXOSMITHKLINE-CN2024GSK103588

PATIENT

DRUGS (3)
  1. ZEJULA [Suspect]
     Active Substance: NIRAPARIB
     Indication: Ovarian cancer
     Dosage: 100 MG, QD
     Route: 048
     Dates: start: 20240702, end: 20240708
  2. ZEJULA [Suspect]
     Active Substance: NIRAPARIB
     Dosage: UNK UNK, QD (1 TABLET/2 TABLETS, QD) ALTERNATELY FOR 1 WEEK
     Route: 048
     Dates: start: 20240709, end: 20240715
  3. ZEJULA [Suspect]
     Active Substance: NIRAPARIB
     Dosage: UNK UNK, QD (1 TABLET/2 TABLETS, QD) ALTERNATELY FOR 1 WEEK
     Route: 048
     Dates: start: 20240716, end: 20240805

REACTIONS (4)
  - Platelet count decreased [Recovering/Resolving]
  - Gingival bleeding [Unknown]
  - White blood cell count decreased [Unknown]
  - Haemoglobin decreased [Unknown]

NARRATIVE: CASE EVENT DATE: 20240801
